FAERS Safety Report 4774002-X (Version None)
Quarter: 2005Q3

REPORT INFORMATION
  Report Type: 
  Country: None (occurrence: None)
  Receive Date: 20050919
  Receipt Date: 20050906
  Transmission Date: 20060218
  Serious: Yes (Other)
  Sender: FDA-Public Use
  Company Number: HQWYE300908SEP05

PATIENT
  Age: 69 Year
  Sex: Female
  Weight: 61.74 kg

DRUGS (6)
  1. PREMARIN [Suspect]
     Indication: HOT FLUSH
     Dosage: SEE IMAGE
     Route: 048
     Dates: start: 19650101, end: 19850101
  2. PREMARIN [Suspect]
     Indication: MENOPAUSE
     Dosage: SEE IMAGE
     Route: 048
     Dates: start: 19650101, end: 19850101
  3. PREMARIN [Suspect]
     Indication: HOT FLUSH
     Dosage: SEE IMAGE
     Route: 048
     Dates: start: 19910101, end: 20050101
  4. PREMARIN [Suspect]
     Indication: MENOPAUSE
     Dosage: SEE IMAGE
     Route: 048
     Dates: start: 19910101, end: 20050101
  5. PREMARIN [Suspect]
     Indication: HOT FLUSH
     Dosage: SEE IMAGE
     Route: 048
     Dates: start: 20050101
  6. PREMARIN [Suspect]
     Indication: MENOPAUSE
     Dosage: SEE IMAGE
     Route: 048
     Dates: start: 20050101

REACTIONS (6)
  - CYSTITIS INTERSTITIAL [None]
  - DIVERTICULITIS [None]
  - HOT FLUSH [None]
  - OSTEOARTHRITIS [None]
  - URINARY INCONTINENCE [None]
  - UTERINE HAEMORRHAGE [None]
